FAERS Safety Report 19654848 (Version 1)
Quarter: 2021Q3

REPORT INFORMATION
  Report Type: Spontaneous
  Country: FR (occurrence: FR)
  Receive Date: 20210804
  Receipt Date: 20210804
  Transmission Date: 20211014
  Serious: Yes (Other)
  Sender: FDA-Public Use
  Company Number: FR-AUROBINDO-AUR-APL-2020-012453

PATIENT
  Age: 40 Year
  Sex: Male

DRUGS (1)
  1. ATENOLOL ARROW FILM?COATED TABLET 50MG [Suspect]
     Active Substance: ATENOLOL
     Indication: CARDIAC DISORDER
     Dosage: UNK
     Route: 048
     Dates: start: 2003

REACTIONS (8)
  - Gastrointestinal disorder [Not Recovered/Not Resolved]
  - Limb discomfort [Not Recovered/Not Resolved]
  - Libido decreased [Not Recovered/Not Resolved]
  - Fatigue [Not Recovered/Not Resolved]
  - Blood pressure decreased [Not Recovered/Not Resolved]
  - Dyspnoea [Not Recovered/Not Resolved]
  - Erectile dysfunction [Not Recovered/Not Resolved]
  - Gait disturbance [Not Recovered/Not Resolved]
